FAERS Safety Report 5301990-5 (Version None)
Quarter: 2007Q2

REPORT INFORMATION
  Report Type: 
  Country: None (occurrence: None)
  Receive Date: 20070416
  Receipt Date: 20070416
  Transmission Date: 20071010
  Serious: No
  Sender: FDA-Public Use
  Company Number: None

PATIENT
  Age: 79 Year
  Sex: Male
  Weight: 68.4932 kg

DRUGS (2)
  1. VIAGRA [Suspect]
     Indication: ERECTILE DYSFUNCTION
     Dosage: 25 MG. TO 100 MG   ONCE A WEEK
     Dates: start: 20021001, end: 20061201
  2. CIALIS [Suspect]
     Indication: ERECTILE DYSFUNCTION
     Dosage: 20 MG.  ONCE A WEEK
     Dates: start: 20061101, end: 20070402

REACTIONS (1)
  - OPTIC ISCHAEMIC NEUROPATHY [None]
